FAERS Safety Report 11153403 (Version 1)
Quarter: 2015Q2

REPORT INFORMATION
  Report Type: Spontaneous
  Country: US (occurrence: US)
  Receive Date: 20150602
  Receipt Date: 20150602
  Transmission Date: 20150821
  Serious: No
  Sender: FDA-Public Use
  Company Number: US-ASTRAZENECA-2015SE06086

PATIENT
  Age: 69 Year
  Sex: Female

DRUGS (1)
  1. BYDUREON [Suspect]
     Active Substance: EXENATIDE
     Indication: DIABETES MELLITUS
     Dosage: 2 MG 4 COUNT,ONCE A WEEK
     Route: 058

REACTIONS (3)
  - Malaise [Unknown]
  - Injection site pain [Unknown]
  - Oropharyngeal pain [Unknown]
